FAERS Safety Report 4896144-0 (Version None)
Quarter: 2006Q1

REPORT INFORMATION
  Report Type: 
  Country: None (occurrence: None)
  Receive Date: 20060131
  Receipt Date: 20060120
  Transmission Date: 20060701
  Serious: Yes (Other)
  Sender: FDA-Public Use
  Company Number: US-JNJFOC-20051103508

PATIENT
  Sex: Male
  Weight: 108.41 kg

DRUGS (21)
  1. REMICADE [Suspect]
     Dosage: TOTAL OF 25 INFUSIONS
     Route: 042
  2. REMICADE [Suspect]
     Dosage: 23 INFUSIONS, DATES UNSPECIFIED
     Route: 042
  3. REMICADE [Suspect]
     Indication: RHEUMATOID ARTHRITIS
     Route: 042
  4. METHOTREXATE [Concomitant]
  5. NSAID [Concomitant]
  6. FOLIC ACID [Concomitant]
  7. CELEBREX [Concomitant]
  8. LIPITOR [Concomitant]
  9. ATENOLOL [Concomitant]
  10. ATACAND [Concomitant]
  11. ASPIRIN [Concomitant]
  12. MULTI-VITAMIN [Concomitant]
  13. MULTI-VITAMIN [Concomitant]
  14. MULTI-VITAMIN [Concomitant]
  15. MULTI-VITAMIN [Concomitant]
  16. MULTI-VITAMIN [Concomitant]
  17. MULTI-VITAMIN [Concomitant]
  18. MULTI-VITAMIN [Concomitant]
  19. MULTI-VITAMIN [Concomitant]
  20. LEXAPRO [Concomitant]
  21. ZETIA [Concomitant]

REACTIONS (1)
  - TUBERCULOSIS [None]
